FAERS Safety Report 9587198 (Version 3)
Quarter: 2017Q3

REPORT INFORMATION
  Report Type: Report from Study
  Country: TN (occurrence: TN)
  Receive Date: 20131003
  Receipt Date: 20170801
  Transmission Date: 20171128
  Serious: Yes (Other)
  Sender: FDA-Public Use
  Company Number: TN-ROCHE-1267216

PATIENT

DRUGS (2)
  1. BEVACIZUMAB. [Suspect]
     Active Substance: BEVACIZUMAB
     Indication: CHOROIDAL NEOVASCULARISATION
     Dosage: (1.25 MG IN A VOLUME OF 0.05 ML)
     Route: 050
  2. BEVACIZUMAB. [Suspect]
     Active Substance: BEVACIZUMAB
     Indication: OFF LABEL USE

REACTIONS (9)
  - Intentional product use issue [Unknown]
  - Optic atrophy [Unknown]
  - Off label use [Unknown]
  - Hypertension [Unknown]
  - Eye inflammation [Unknown]
  - Conjunctival haemorrhage [Unknown]
  - Vitreous haemorrhage [Unknown]
  - Chorioretinal atrophy [Unknown]
  - Corneal abrasion [Unknown]
